FAERS Safety Report 11822247 (Version 6)
Quarter: 2016Q4

REPORT INFORMATION
  Report Type: Spontaneous
  Country: US (occurrence: US)
  Receive Date: 20151210
  Receipt Date: 20161003
  Transmission Date: 20170206
  Serious: Yes (Other)
  Sender: FDA-Public Use
  Company Number: US-JNJFOC-20150708397

PATIENT
  Age: 79 Year
  Sex: Female

DRUGS (9)
  1. LAMOTRIGINE. [Concomitant]
     Active Substance: LAMOTRIGINE
     Indication: PARTIAL SEIZURES
  2. ESTRACE [Concomitant]
     Active Substance: ESTRADIOL
  3. VITAMIN D3 [Concomitant]
     Active Substance: CHOLECALCIFEROL
  4. POTASSIUM [Concomitant]
     Active Substance: POTASSIUM
  5. SYNTHROID [Concomitant]
     Active Substance: LEVOTHYROXINE SODIUM
     Indication: THYROID DISORDER
  6. PROGESTERONE. [Concomitant]
     Active Substance: PROGESTERONE
  7. LOSARTIN [Concomitant]
     Active Substance: LOSARTAN
  8. IMBRUVICA [Suspect]
     Active Substance: IBRUTINIB
     Indication: CHRONIC LYMPHOCYTIC LEUKAEMIA
     Route: 048
     Dates: start: 20150529
  9. LAMOTRIGINE. [Concomitant]
     Active Substance: LAMOTRIGINE
     Indication: EPILEPSY

REACTIONS (11)
  - Insomnia [Not Recovered/Not Resolved]
  - Onychoclasis [Unknown]
  - Ingrowing nail [Not Recovered/Not Resolved]
  - Bone pain [Unknown]
  - Cystitis [Unknown]
  - Irritable bowel syndrome [Not Recovered/Not Resolved]
  - Bladder prolapse [Unknown]
  - Diarrhoea [Not Recovered/Not Resolved]
  - Intestinal prolapse [Unknown]
  - Surgery [Recovering/Resolving]
  - Fungal infection [Unknown]

NARRATIVE: CASE EVENT DATE: 2015
